FAERS Safety Report 25539774 (Version 1)
Quarter: 2025Q3

REPORT INFORMATION
  Report Type: Spontaneous
  Country: CN (occurrence: CN)
  Receive Date: 20250710
  Receipt Date: 20250710
  Transmission Date: 20251020
  Serious: Yes (Hospitalization)
  Sender: ABBVIE
  Company Number: CN-ABBVIE-6362321

PATIENT
  Age: 15 Year
  Sex: Male
  Weight: 38 kg

DRUGS (3)
  1. VENETOCLAX [Suspect]
     Active Substance: VENETOCLAX
     Indication: Acute lymphocytic leukaemia
     Dosage: 1400 MILLIGRAM
     Route: 048
     Dates: start: 20250621
  2. OMACETAXINE MEPESUCCINATE [Suspect]
     Active Substance: OMACETAXINE MEPESUCCINATE
     Indication: Acute lymphocytic leukaemia
     Dosage: 1.4 MILLIGRAM
     Route: 041
     Dates: start: 20250621, end: 20250625
  3. DECITABINE [Suspect]
     Active Substance: DECITABINE
     Indication: Lymphocytic leukaemia
     Dosage: 25 MILLIGRAM
     Route: 041
     Dates: start: 20250621, end: 20250625

REACTIONS (1)
  - Myelosuppression [Recovering/Resolving]

NARRATIVE: CASE EVENT DATE: 20250624
